FAERS Safety Report 9557789 (Version 1)
Quarter: 2013Q3

REPORT INFORMATION
  Report Type: Spontaneous
  Country: DE (occurrence: None)
  Receive Date: 20130912
  Receipt Date: 20130912
  Transmission Date: 20140515
  Serious: Yes (Other)
  Sender: FDA-Public Use
  Company Number: 2013037840

PATIENT
  Age: 84 Year
  Sex: Male

DRUGS (1)
  1. PRIVIGEN (IMMUNE GLOBULIN INTRAVENOUS (HUMAN) 10% LIQUID) [Suspect]
     Indication: IMMUNODEFICIENCY
     Dosage: 10G/100 ML INFUSION 2-3 ML/MIN
     Route: 042
     Dates: start: 20130610, end: 20130610

REACTIONS (5)
  - Productive cough [None]
  - Sputum discoloured [None]
  - Bronchospasm [None]
  - Muscular weakness [None]
  - Local swelling [None]
